FAERS Safety Report 15965218 (Version 2)
Quarter: 2020Q3

REPORT INFORMATION
  Report Type: Report from Study
  Country: KR (occurrence: KR)
  Receive Date: 20190215
  Receipt Date: 20190222
  Transmission Date: 20201105
  Serious: Yes (Hospitalization)
  Sender: FDA-Public Use
  Company Number: KR-ROCHE-2239265

PATIENT
  Age: 39 Year
  Sex: Female

DRUGS (8)
  1. MAGNESIUM OXIDE. [Concomitant]
     Active Substance: MAGNESIUM OXIDE
  2. ATEZOLIZUMAB. [Suspect]
     Active Substance: ATEZOLIZUMAB
     Indication: BREAST CANCER
     Dosage: MOST RECENT DOSE OF ATEZOLIZUMAB OF 1200 MG PRIOR TO SAE: 19/DEC/2018
     Route: 042
     Dates: start: 20181219
  3. BISACODYL. [Concomitant]
     Active Substance: BISACODYL
  4. METOCLOPRAMIDE. [Concomitant]
     Active Substance: METOCLOPRAMIDE
  5. IPATASERTIB. [Suspect]
     Active Substance: IPATASERTIB
     Indication: BREAST CANCER
     Dosage: DATE OF LAST DOSE OF IPATASERTIB OF 400 MG PRIOR TO SAE ONSET: 27/DEC/2018
     Route: 048
     Dates: start: 20181219, end: 20181227
  6. LOPERAMIDE HCL [Concomitant]
     Active Substance: LOPERAMIDE HYDROCHLORIDE
  7. FEXOFENADINE [Concomitant]
     Active Substance: FEXOFENADINE HYDROCHLORIDE
  8. LORAZEPAM. [Concomitant]
     Active Substance: LORAZEPAM

REACTIONS (2)
  - Rash maculo-papular [Recovered/Resolved]
  - Febrile neutropenia [Recovered/Resolved]

NARRATIVE: CASE EVENT DATE: 20181228
